FAERS Safety Report 17070207 (Version 1)
Quarter: 2019Q4

REPORT INFORMATION
  Report Type: Report from Study
  Country: CA (occurrence: CA)
  Receive Date: 20191125
  Receipt Date: 20191125
  Transmission Date: 20200122
  Serious: Yes (Other)
  Sender: FDA-Public Use
  Company Number: CA-SA-2017SA249098

PATIENT
  Age: 27 Year
  Sex: Female

DRUGS (11)
  1. ACICLOVIR [Concomitant]
     Active Substance: ACYCLOVIR
     Indication: PREMEDICATION
     Dosage: 200 MG,BID
     Route: 048
     Dates: start: 20171206
  2. TAPAZOLE [Concomitant]
     Active Substance: METHIMAZOLE
     Dosage: 7.5 MG,QD
     Route: 065
  3. TAPAZOLE [Concomitant]
     Active Substance: METHIMAZOLE
     Dosage: 10 MG,QD
     Route: 065
  4. ALEMTUZUMAB [Suspect]
     Active Substance: ALEMTUZUMAB
     Dosage: 12 MG,QD
     Route: 041
     Dates: start: 20171208, end: 20171208
  5. ALEMTUZUMAB [Suspect]
     Active Substance: ALEMTUZUMAB
     Indication: RELAPSING-REMITTING MULTIPLE SCLEROSIS
     Dosage: 12 MG,QD
     Route: 041
     Dates: start: 20171206, end: 20171206
  6. ALEMTUZUMAB [Suspect]
     Active Substance: ALEMTUZUMAB
     Dosage: 12 MG,QD
     Route: 041
     Dates: start: 20171211, end: 20171211
  7. REACTINE [CETIRIZINE HYDROCHLORIDE] [Concomitant]
     Active Substance: CETIRIZINE HYDROCHLORIDE
     Indication: PREMEDICATION
     Dosage: 10 MG,UNK
     Route: 048
     Dates: start: 20171206, end: 20171211
  8. METHYLPREDNISOLONE. [Concomitant]
     Active Substance: METHYLPREDNISOLONE
     Indication: PREMEDICATION
     Dosage: 1 G,UNK
     Route: 042
     Dates: start: 20171206, end: 20171211
  9. AMITRIPTYLINE [Concomitant]
     Active Substance: AMITRIPTYLINE
     Indication: MIGRAINE
     Dosage: 10 G,QD
     Route: 048
  10. ACETAMINOPHEN. [Concomitant]
     Active Substance: ACETAMINOPHEN
     Indication: PREMEDICATION
     Dosage: 1 G,PRN
     Route: 048
     Dates: start: 20171206
  11. RANITIDINE. [Concomitant]
     Active Substance: RANITIDINE
     Indication: PREMEDICATION
     Dosage: 150 MG,UNK
     Route: 048
     Dates: start: 20171206, end: 20171211

REACTIONS (24)
  - Thyroxine free decreased [Recovered/Resolved]
  - Pallor [Recovered/Resolved]
  - Platelet count decreased [Recovered/Resolved]
  - Lymphocyte percentage increased [Recovered/Resolved]
  - Red blood cell sedimentation rate increased [Unknown]
  - Blood urine present [Recovered/Resolved]
  - Lymphocyte percentage decreased [Recovered/Resolved]
  - Haemorrhage [Recovered/Resolved]
  - Bacterial test positive [Recovered/Resolved]
  - Chills [Recovered/Resolved]
  - Urinary sediment present [Not Recovered/Not Resolved]
  - Pyrexia [Recovered/Resolved]
  - Pain [Recovered/Resolved]
  - Vomiting [Recovered/Resolved]
  - White blood cells urine positive [Recovered/Resolved]
  - Red cell distribution width increased [Recovered/Resolved]
  - Headache [Recovered/Resolved]
  - Blood thyroid stimulating hormone increased [Recovered/Resolved]
  - Urine analysis abnormal [Not Recovered/Not Resolved]
  - Specific gravity urine decreased [Recovered/Resolved]
  - Urine ketone body present [Recovered/Resolved]
  - Urine leukocyte esterase positive [Recovered/Resolved]
  - Heart rate increased [Recovering/Resolving]
  - Nausea [Recovered/Resolved]

NARRATIVE: CASE EVENT DATE: 20171206
